FAERS Safety Report 25107684 (Version 2)
Quarter: 2025Q2

REPORT INFORMATION
  Report Type: Spontaneous
  Country: BR (occurrence: BR)
  Receive Date: 20250322
  Receipt Date: 20250410
  Transmission Date: 20250716
  Serious: Yes (Hospitalization)
  Sender: AMGEN
  Company Number: BR-AMGEN-BRASP2025052357

PATIENT
  Age: 28 Year
  Sex: Female
  Weight: 59 kg

DRUGS (3)
  1. AVSOLA [Suspect]
     Active Substance: INFLIXIMAB-AXXQ
     Indication: Colectomy
     Route: 065
     Dates: start: 20250311, end: 20250311
  2. PROMETHAZINE [Concomitant]
     Active Substance: PROMETHAZINE HYDROCHLORIDE
     Route: 030
  3. HYDROCORTISONE [Concomitant]
     Active Substance: HYDROCORTISONE
     Route: 040

REACTIONS (26)
  - Pruritus [Unknown]
  - Face oedema [Unknown]
  - Malaise [Unknown]
  - Rash [Unknown]
  - Urticaria [Unknown]
  - Hyperhidrosis [Unknown]
  - Dry skin [Unknown]
  - Fungal skin infection [Unknown]
  - Onychomycosis [Unknown]
  - Eczema [Unknown]
  - Seborrhoea [Unknown]
  - Alopecia [Unknown]
  - Upper respiratory tract infection [Unknown]
  - Lower respiratory tract infection [Unknown]
  - Pneumonia [Unknown]
  - Dyspnoea [Unknown]
  - Sinusitis [Unknown]
  - Pleurisy [Unknown]
  - Pulmonary oedema [Unknown]
  - Chest pain [Unknown]
  - Oedema [Unknown]
  - Hot flush [Unknown]
  - Pain [Unknown]
  - Chills [Unknown]
  - Musculoskeletal stiffness [Unknown]
  - Off label use [Unknown]

NARRATIVE: CASE EVENT DATE: 20250311
